FAERS Safety Report 22629188 (Version 1)
Quarter: 2023Q2

REPORT INFORMATION
  Report Type: Spontaneous
  Country: US (occurrence: None)
  Receive Date: 20230621
  Receipt Date: 20230621
  Transmission Date: 20230722
  Serious: Yes (Other)
  Sender: FDA-Public Use
  Company Number: None

PATIENT
  Sex: 0

DRUGS (1)
  1. CABENUVA [Suspect]
     Active Substance: CABOTEGRAVIR\RILPIVIRINE

REACTIONS (9)
  - Chest pain [None]
  - Myocardial infarction [None]
  - Nephropathy [None]
  - Glucose tolerance impaired [None]
  - Anxiety [None]
  - Post procedural complication [None]
  - Gait disturbance [None]
  - Sitting disability [None]
  - Pain [None]
